FAERS Safety Report 4434067-1 (Version None)
Quarter: 2004Q3

REPORT INFORMATION
  Report Type: 
  Country: None (occurrence: None)
  Receive Date: 20040825
  Receipt Date: 20040809
  Transmission Date: 20050211
  Serious: Yes (Hospitalization)
  Sender: FDA-Public Use
  Company Number: USA040875069

PATIENT
  Sex: Female

DRUGS (2)
  1. ZYPREXA [Suspect]
     Indication: BIPOLAR DISORDER
  2. SYMBYAX [Suspect]

REACTIONS (3)
  - DEPRESSION [None]
  - LEGAL PROBLEM [None]
  - MANIA [None]
